FAERS Safety Report 5684864-X (Version None)
Quarter: 2008Q1

REPORT INFORMATION
  Report Type: 
  Country: None (occurrence: None)
  Receive Date: 20080328
  Receipt Date: 20071106
  Transmission Date: 20080703
  Serious: No
  Sender: FDA-Public Use
  Company Number: US-BRISTOL-MYERS SQUIBB COMPANY-13971791

PATIENT
  Age: 59 Year
  Sex: Male

DRUGS (5)
  1. ERBITUX [Suspect]
     Indication: COLORECTAL CANCER METASTATIC
     Route: 042
     Dates: start: 20070723
  2. CAMPTOSAR [Suspect]
  3. BENADRYL [Concomitant]
     Route: 042
  4. DECADRON [Concomitant]
     Route: 042
  5. ZOFRAN [Concomitant]
     Route: 042

REACTIONS (2)
  - INFUSION RELATED REACTION [None]
  - PRURITUS [None]
